FAERS Safety Report 21486424 (Version 1)
Quarter: 2022Q4

REPORT INFORMATION
  Report Type: Spontaneous
  Country: US (occurrence: None)
  Receive Date: 20221019
  Receipt Date: 20221019
  Transmission Date: 20230113
  Serious: No
  Sender: FDA-Public Use
  Company Number: None

PATIENT
  Age: 42 Year
  Sex: Male

DRUGS (1)
  1. DUPIXENT [Suspect]
     Active Substance: DUPILUMAB
     Indication: Sinusitis
     Dosage: 800 MG EVERY OTHER WEEK SUB-Q?
     Route: 058
     Dates: start: 20220527

REACTIONS (3)
  - Device defective [None]
  - Product leakage [None]
  - Product dose omission issue [None]

NARRATIVE: CASE EVENT DATE: 20221018
